FAERS Safety Report 12622013 (Version 3)
Quarter: 2016Q3

REPORT INFORMATION
  Report Type: Spontaneous
  Country: DK (occurrence: FR)
  Receive Date: 20160804
  Receipt Date: 20160811
  Transmission Date: 20161109
  Serious: Yes (Hospitalization)
  Sender: FDA-Public Use
  Company Number: FR-FRI-1000086555

PATIENT
  Age: 45 Year
  Sex: Female

DRUGS (4)
  1. INEXIUM [Concomitant]
     Active Substance: ESOMEPRAZOLE
     Dosage: 40 MG
     Route: 065
  2. LEVOTHYROX [Concomitant]
     Active Substance: LEVOTHYROXINE
     Dosage: 125 MCG
     Route: 065
  3. ESCITALOPRAM [Suspect]
     Active Substance: ESCITALOPRAM OXALATE
     Indication: POISONING DELIBERATE
     Route: 048
     Dates: start: 20160704
  4. LYSANXIA [Suspect]
     Active Substance: PRAZEPAM
     Indication: POISONING DELIBERATE
     Route: 048
     Dates: start: 20160704

REACTIONS (5)
  - Subcutaneous emphysema [Recovering/Resolving]
  - Road traffic accident [Recovered/Resolved]
  - Intentional overdose [Recovered/Resolved]
  - Multiple fractures [Recovering/Resolving]
  - Pneumothorax traumatic [Recovering/Resolving]

NARRATIVE: CASE EVENT DATE: 20160704
